FAERS Safety Report 8099718-1 (Version None)
Quarter: 2012Q1

REPORT INFORMATION
  Report Type: 
  Country: None (occurrence: None)
  Receive Date: 20120129
  Receipt Date: 20110916
  Transmission Date: 20120608
  Serious: No
  Sender: FDA-Public Use
  Company Number: US-ABBOTT-11P-163-0855503-00

PATIENT
  Sex: Female
  Weight: 79.45 kg

DRUGS (7)
  1. FOLIC ACID [Concomitant]
     Indication: SUPPLEMENTATION THERAPY
  2. GOODY'S [Concomitant]
     Indication: MIGRAINE
  3. NAPROXEN (ALEVE) [Concomitant]
     Indication: BACK DISORDER
  4. HUMIRA [Suspect]
     Indication: PSORIATIC ARTHROPATHY
     Route: 058
  5. TOPAMAX [Concomitant]
     Indication: MIGRAINE
  6. MAXALT [Concomitant]
     Indication: MIGRAINE
  7. DIPHENHYDRAMINE HCL [Concomitant]
     Indication: INSOMNIA

REACTIONS (3)
  - SINUS CONGESTION [None]
  - NASOPHARYNGITIS [None]
  - COUGH [None]
